FAERS Safety Report 15725626 (Version 1)
Quarter: 2018Q4

REPORT INFORMATION
  Report Type: Spontaneous
  Country: US (occurrence: US)
  Receive Date: 20181215
  Receipt Date: 20181215
  Transmission Date: 20190205
  Serious: No
  Sender: FDA-Public Use
  Company Number: US-009507513-1812USA001068

PATIENT
  Sex: Female

DRUGS (1)
  1. NEXPLANON [Suspect]
     Active Substance: ETONOGESTREL
     Indication: ILL-DEFINED DISORDER
     Dosage: 1 IMPLANT (REPORTED AS 68 MG, DAILY)
     Route: 059
     Dates: start: 201605

REACTIONS (1)
  - Vaginal haemorrhage [Unknown]
